FAERS Safety Report 9154571 (Version 1)
Quarter: 2013Q1

REPORT INFORMATION
  Report Type: Spontaneous
  Country: US (occurrence: None)
  Receive Date: 20130206
  Receipt Date: 20130206
  Transmission Date: 20140127
  Serious: Yes (Other)
  Sender: FDA-Public Use
  Company Number: US-SEPTODONT-201300938

PATIENT
  Age: 46 Year
  Sex: Female

DRUGS (1)
  1. SEPTOCAINE [Suspect]
     Indication: LOCAL ANAESTHESIA
     Route: 004
     Dates: start: 20120731, end: 20120731

REACTIONS (6)
  - Feeling abnormal [None]
  - Lip disorder [None]
  - Heart rate increased [None]
  - Paraesthesia [None]
  - Pain in jaw [None]
  - Neuritis [None]
